FAERS Safety Report 18932636 (Version 7)
Quarter: 2022Q4

REPORT INFORMATION
  Report Type: Report from Study
  Country: US (occurrence: US)
  Receive Date: 20210224
  Receipt Date: 20221108
  Transmission Date: 20230113
  Serious: Yes (Hospitalization, Other)
  Sender: FDA-Public Use
  Company Number: US-TAKEDA-US202015144

PATIENT
  Sex: Female

DRUGS (2)
  1. HUMAN IMMUNOGLOBULIN G [Suspect]
     Active Substance: HUMAN IMMUNOGLOBULIN G
     Indication: Primary immunodeficiency syndrome
     Dosage: 35 GRAM, MONTHLY
     Route: 042
  2. PREDNISONE [Concomitant]
     Active Substance: PREDNISONE
     Indication: Illness
     Dosage: UNK
     Route: 065

REACTIONS (15)
  - COVID-19 [Not Recovered/Not Resolved]
  - Polymyalgia rheumatica [Unknown]
  - Gastroenteritis viral [Unknown]
  - Stress [Unknown]
  - Illness [Unknown]
  - Arthritis [Unknown]
  - Alopecia [Recovering/Resolving]
  - Dyspnoea [Unknown]
  - Cardiac murmur [Unknown]
  - Depression [Unknown]
  - Bronchitis [Unknown]
  - Fibromyalgia [Unknown]
  - Spondylitis [Recovering/Resolving]
  - Fatigue [Unknown]
  - Malaise [Unknown]
